FAERS Safety Report 18858578 (Version 2)
Quarter: 2021Q2

REPORT INFORMATION
  Report Type: Spontaneous
  Country: US (occurrence: US)
  Receive Date: 20210208
  Receipt Date: 20210401
  Transmission Date: 20210717
  Serious: Yes (Death, Other)
  Sender: FDA-Public Use
  Company Number: US-GLAXOSMITHKLINE-US2021GSK030213

PATIENT
  Sex: Female

DRUGS (14)
  1. RANITIDINE. [Suspect]
     Active Substance: RANITIDINE
     Indication: DYSPHAGIA
     Dosage: 150 MG, QD
     Route: 065
     Dates: start: 201001, end: 201311
  2. ZANTAC [Suspect]
     Active Substance: RANITIDINE HYDROCHLORIDE
     Indication: DYSPHAGIA
     Dosage: 150 MG, QD
     Route: 065
     Dates: start: 201001, end: 201311
  3. ZANTAC [Suspect]
     Active Substance: RANITIDINE HYDROCHLORIDE
     Indication: CHEST PAIN
  4. ZANTAC [Suspect]
     Active Substance: RANITIDINE HYDROCHLORIDE
     Indication: CHEST PAIN
  5. RANITIDINE. [Suspect]
     Active Substance: RANITIDINE
     Indication: DYSPHAGIA
     Dosage: 150 MG, QD
     Route: 065
     Dates: start: 201001, end: 201311
  6. RANITIDINE CAPSULE [Suspect]
     Active Substance: RANITIDINE
     Indication: DYSPHAGIA
     Dosage: 150 MG, QD
     Route: 065
     Dates: start: 201001, end: 201311
  7. ZANTAC [Suspect]
     Active Substance: RANITIDINE HYDROCHLORIDE
     Indication: CHEST PAIN
  8. ZANTAC [Suspect]
     Active Substance: RANITIDINE HYDROCHLORIDE
     Indication: DYSPHAGIA
     Dosage: 150 MG, QD
     Route: 065
     Dates: start: 201001, end: 201311
  9. RANITIDINE. [Suspect]
     Active Substance: RANITIDINE
     Indication: CHEST PAIN
  10. RANITIDINE. [Suspect]
     Active Substance: RANITIDINE
     Indication: CHEST PAIN
  11. ZANTAC [Suspect]
     Active Substance: RANITIDINE HYDROCHLORIDE
     Indication: DYSPHAGIA
     Dosage: 150 MG, QD
     Route: 065
     Dates: start: 201001, end: 201311
  12. RANITIDINE CAPSULE [Suspect]
     Active Substance: RANITIDINE
     Indication: CHEST PAIN
  13. RANITIDINE. [Suspect]
     Active Substance: RANITIDINE
     Indication: CHEST PAIN
  14. RANITIDINE. [Suspect]
     Active Substance: RANITIDINE
     Indication: DYSPHAGIA
     Dosage: 150 MG, QD
     Route: 065
     Dates: start: 201001, end: 201311

REACTIONS (1)
  - Oesophageal carcinoma [Fatal]
